FAERS Safety Report 7276785-6 (Version None)
Quarter: 2011Q1

REPORT INFORMATION
  Report Type: 
  Country: None (occurrence: None)
  Receive Date: 20110207
  Receipt Date: 20110131
  Transmission Date: 20110831
  Serious: Yes (Hospitalization, Other)
  Sender: FDA-Public Use
  Company Number: US-AMGEN-USASP2011005785

PATIENT
  Age: 60 Year
  Sex: Female

DRUGS (1)
  1. ENBREL [Suspect]
     Indication: PSORIASIS
     Dosage: 50 MG, QWK
     Dates: start: 20101001, end: 20101201

REACTIONS (5)
  - BLADDER PROLAPSE [None]
  - TRANSPLANT REJECTION [None]
  - POLLAKIURIA [None]
  - VAGINAL WALL CONGESTION [None]
  - URINARY INCONTINENCE [None]
